FAERS Safety Report 8793417 (Version 1)
Quarter: 2012Q4

REPORT INFORMATION
  Report Type: 
  Country: US (occurrence: US)
  Receive Date: 20120917
  Receipt Date: 20120917
  Transmission Date: 20130627
  Serious: No
  Sender: FDA-Public Use
  Company Number: US-BAYER-2012-096441

PATIENT
  Age: 85 Year
  Sex: Female
  Weight: 68.03 kg

DRUGS (3)
  1. ALEVE CAPLET/TABLET,MIDOL EXTENDED RELIEF CAPLET [Suspect]
     Indication: ARTHRITIS
     Dosage: 6 DF, PRN
     Route: 048
     Dates: start: 20120908, end: 20120908
  2. ALEVE CAPLET/TABLET,MIDOL EXTENDED RELIEF CAPLET [Suspect]
     Indication: ARTHRITIS
     Dosage: More than 3 DF
     Route: 048
     Dates: start: 20120909, end: 20120909
  3. SUPPLEMENTS [Concomitant]

REACTIONS (1)
  - No adverse event [None]
